FAERS Safety Report 24421113 (Version 2)
Quarter: 2024Q4

REPORT INFORMATION
  Report Type: Spontaneous
  Country: JP (occurrence: JP)
  Receive Date: 20241010
  Receipt Date: 20241205
  Transmission Date: 20250115
  Serious: Yes (Hospitalization, Other)
  Sender: ASTELLAS
  Company Number: JP-ASTELLAS-2024-AER-010540

PATIENT
  Age: 77 Year
  Sex: Male

DRUGS (3)
  1. TACROLIMUS [Suspect]
     Active Substance: TACROLIMUS
     Indication: Renal transplant
     Route: 048
  2. PROGRAF [Suspect]
     Active Substance: TACROLIMUS
     Indication: Renal transplant
     Route: 042
  3. PROGRAF [Suspect]
     Active Substance: TACROLIMUS
     Route: 042

REACTIONS (4)
  - Immunosuppressant drug level decreased [Recovered/Resolved]
  - Peritonitis [Recovered/Resolved]
  - Duodenal perforation [Recovered/Resolved]
  - Biliary dilatation [Recovered/Resolved]

NARRATIVE: CASE EVENT DATE: 20240801
